FAERS Safety Report 15313574 (Version 3)
Quarter: 2018Q3

REPORT INFORMATION
  Report Type: Spontaneous
  Country: JP (occurrence: JP)
  Receive Date: 20180824
  Receipt Date: 20180927
  Transmission Date: 20181010
  Serious: Yes (Death, Hospitalization)
  Sender: FDA-Public Use
  Company Number: JP-ROCHE-2172557

PATIENT
  Age: 83 Year
  Sex: Male

DRUGS (3)
  1. RITUXAN [Suspect]
     Active Substance: RITUXIMAB
     Indication: LYMPHOPROLIFERATIVE DISORDER
     Dosage: 100 MG
     Route: 041
  2. OPDIVO [Concomitant]
     Active Substance: NIVOLUMAB
     Indication: LYMPHOPROLIFERATIVE DISORDER
     Route: 041
  3. ADCETRIS [Suspect]
     Active Substance: BRENTUXIMAB VEDOTIN
     Indication: LYMPHOPROLIFERATIVE DISORDER
     Route: 041

REACTIONS (2)
  - Biliary fistula [Fatal]
  - Arterial haemorrhage [Recovered/Resolved]
